FAERS Safety Report 7771479-2 (Version None)
Quarter: 2011Q3

REPORT INFORMATION
  Report Type: 
  Country: None (occurrence: None)
  Receive Date: 20110922
  Receipt Date: 20100923
  Transmission Date: 20111222
  Serious: No
  Sender: FDA-Public Use
  Company Number: US-ASTRAZENECA-2010SE44985

PATIENT
  Age: 16605 Day
  Sex: Male
  Weight: 99.8 kg

DRUGS (4)
  1. SEROQUEL XR [Suspect]
     Indication: DEPRESSION
     Route: 048
     Dates: start: 20080101, end: 20100916
  2. SEROQUEL XR [Suspect]
     Indication: DEPRESSED MOOD
     Route: 048
     Dates: start: 20080101, end: 20100916
  3. SEROQUEL XR [Suspect]
     Route: 048
     Dates: start: 20100916
  4. SEROQUEL XR [Suspect]
     Route: 048
     Dates: start: 20100916

REACTIONS (2)
  - SOMNOLENCE [None]
  - WRONG DRUG ADMINISTERED [None]
